FAERS Safety Report 8590114-7 (Version None)
Quarter: 2012Q3

REPORT INFORMATION
  Report Type: 
  Country: None (occurrence: None)
  Receive Date: 20120813
  Receipt Date: 19920527
  Transmission Date: 20120928
  Serious: Yes (Hospitalization)
  Sender: FDA-Public Use
  Company Number: US-ROCHE-1099741

PATIENT
  Sex: Male

DRUGS (3)
  1. ACTIVASE [Suspect]
     Route: 042
  2. ACTIVASE [Suspect]
     Indication: ARTERIOSCLEROSIS CORONARY ARTERY
     Route: 040
     Dates: start: 19920423
  3. ACTIVASE [Suspect]
     Route: 042

REACTIONS (3)
  - PAIN IN EXTREMITY [None]
  - BRADYCARDIA [None]
  - CHEST PAIN [None]
